FAERS Safety Report 8470605-X (Version None)
Quarter: 2012Q2

REPORT INFORMATION
  Report Type: 
  Country: None (occurrence: None)
  Receive Date: 20120627
  Receipt Date: 20120621
  Transmission Date: 20120825
  Serious: Yes (Other)
  Sender: FDA-Public Use
  Company Number: PHFR2012GB003647

PATIENT
  Sex: Male

DRUGS (2)
  1. EXELON [Suspect]
     Dosage: 24 MG, ONCE/SINGLE
  2. EXELON [Suspect]
     Dosage: UNK

REACTIONS (1)
  - INCORRECT DOSE ADMINISTERED [None]
